FAERS Safety Report 12167613 (Version 4)
Quarter: 2018Q4

REPORT INFORMATION
  Report Type: Spontaneous
  Country: FR (occurrence: FR)
  Receive Date: 20160310
  Receipt Date: 20181015
  Transmission Date: 20190204
  Serious: Yes (Congenital Anomaly)
  Sender: FDA-Public Use
  Company Number: PHHY2016FR029841

PATIENT

DRUGS (1)
  1. GILENYA [Suspect]
     Active Substance: FINGOLIMOD HYDROCHLORIDE
     Indication: FOETAL EXPOSURE DURING PREGNANCY
     Dosage: MATERNAL DOSE: 0.5 OT, DAILY
     Route: 064

REACTIONS (7)
  - Congenital great vessel anomaly [Unknown]
  - Ventricular hypoplasia [Unknown]
  - Congenital tricuspid valve atresia [Unknown]
  - Heart disease congenital [Not Recovered/Not Resolved]
  - Ventricular septal defect [Unknown]
  - Congenital pulmonary artery anomaly [Unknown]
  - Foetal exposure during pregnancy [Unknown]

NARRATIVE: CASE EVENT DATE: 201512
